FAERS Safety Report 4558380-2 (Version None)
Quarter: 2005Q1

REPORT INFORMATION
  Report Type: 
  Country: None (occurrence: None)
  Receive Date: 20050121
  Receipt Date: 20050117
  Transmission Date: 20050727
  Serious: Yes (Hospitalization)
  Sender: FDA-Public Use
  Company Number: PHBS2005CH00949

PATIENT
  Age: 46 Year
  Sex: Male

DRUGS (6)
  1. SANDIMMUNE [Suspect]
     Indication: LIVER TRANSPLANT
     Dosage: 1 G/DAY
     Route: 048
     Dates: start: 20041211, end: 20041223
  2. BACTRIM [Concomitant]
     Dosage: 800 MG+160 MG QW3
     Dates: start: 20041211
  3. IMUREK [Concomitant]
     Indication: LIVER TRANSPLANT
     Dosage: 75 MG/DAY
     Route: 048
     Dates: start: 20041211
  4. TOREM [Concomitant]
     Dosage: 5 MG/DAY
     Route: 048
     Dates: start: 20041211
  5. NEXIUM [Concomitant]
     Dosage: 40 MG/DAY
     Route: 048
     Dates: start: 20041211
  6. PREDNISONE [Concomitant]
     Dosage: 20 MG/DAY
     Route: 048
     Dates: start: 20041217

REACTIONS (2)
  - DELIRIUM [None]
  - DRUG LEVEL INCREASED [None]
